FAERS Safety Report 9284102 (Version 2)
Quarter: 2013Q2

REPORT INFORMATION
  Report Type: Report from Study
  Country: CZ (occurrence: CZ)
  Receive Date: 20130510
  Receipt Date: 20130520
  Transmission Date: 20140414
  Serious: Yes (Other)
  Sender: FDA-Public Use
  Company Number: CZ-JNJFOC-20130501218

PATIENT
  Age: 51 Year
  Sex: Male
  Weight: 95 kg

DRUGS (5)
  1. STELARA [Suspect]
     Indication: PSORIASIS
     Route: 058
     Dates: start: 20120808
  2. DUOMOX [Suspect]
     Indication: PREMEDICATION
     Route: 048
     Dates: start: 20130212, end: 20130218
  3. VALSACOMBI [Concomitant]
     Dates: start: 2007
  4. LESCOL XL [Concomitant]
     Route: 048
     Dates: start: 2003
  5. LIPANTHYL [Concomitant]
     Route: 048
     Dates: start: 2003

REACTIONS (2)
  - Anaphylactic reaction [Recovered/Resolved]
  - Cough [Recovered/Resolved]
